FAERS Safety Report 4361117-3 (Version None)
Quarter: 2004Q2

REPORT INFORMATION
  Report Type: 
  Country: None (occurrence: None)
  Receive Date: 20040520
  Receipt Date: 20040510
  Transmission Date: 20050107
  Serious: Yes (Hospitalization)
  Sender: FDA-Public Use
  Company Number: ZA-BRISTOL-MYERS SQUIBB COMPANY-12582391

PATIENT
  Age: 15 Month
  Sex: Male

DRUGS (4)
  1. PROZEF [Suspect]
     Indication: UPPER RESPIRATORY TRACT INFECTION
     Route: 048
     Dates: start: 20040317, end: 20040323
  2. AMOXIL [Concomitant]
     Indication: UPPER RESPIRATORY TRACT INFECTION
     Route: 048
     Dates: start: 20040219, end: 20040223
  3. VAXIGRIP [Concomitant]
     Dates: start: 20040308, end: 20040308
  4. VARILRIX [Concomitant]
     Dates: start: 20040308, end: 20040308

REACTIONS (1)
  - RASH MACULO-PAPULAR [None]
